FAERS Safety Report 9075901 (Version 2)
Quarter: 2013Q2

REPORT INFORMATION
  Report Type: Spontaneous
  Country: US (occurrence: US)
  Receive Date: 20130201
  Receipt Date: 20130406
  Transmission Date: 20140414
  Serious: Yes (Hospitalization, Other)
  Sender: FDA-Public Use
  Company Number: US-B.I. PHARMACEUTICALS,INC./RIDGEFIELD-2013-BI-02139BP

PATIENT
  Age: 77 Year
  Sex: Male
  Weight: 82 kg

DRUGS (2)
  1. PRADAXA [Suspect]
     Indication: ATRIAL FIBRILLATION
     Route: 048
     Dates: start: 201105, end: 201105
  2. PRADAXA [Suspect]
     Dosage: 150 MG
     Dates: start: 20130102

REACTIONS (5)
  - Myocardial infarction [Recovered/Resolved]
  - Cardiac valve disease [Not Recovered/Not Resolved]
  - Coronary artery disease [Unknown]
  - Aortic stenosis [Unknown]
  - Dizziness [Not Recovered/Not Resolved]
